FAERS Safety Report 15603094 (Version 1)
Quarter: 2018Q4

REPORT INFORMATION
  Report Type: Spontaneous
  Country: AU (occurrence: AU)
  Receive Date: 20181109
  Receipt Date: 20181109
  Transmission Date: 20190205
  Serious: Yes (Other)
  Sender: FDA-Public Use
  Company Number: AU-JNJFOC-20181105362

PATIENT
  Age: 59 Year
  Sex: Male

DRUGS (2)
  1. FISH OIL [Concomitant]
     Active Substance: FISH OIL
     Route: 065
     Dates: start: 2015
  2. LEVOFLOXACIN. [Suspect]
     Active Substance: LEVOFLOXACIN
     Indication: ERYTHEMA
     Dosage: AUG AND OCT-2015
     Route: 048
     Dates: start: 2015

REACTIONS (5)
  - Ligament rupture [Unknown]
  - Tendon disorder [Unknown]
  - Tendon rupture [Unknown]
  - Muscle contracture [Unknown]
  - Finger deformity [Unknown]
